FAERS Safety Report 5804560-5 (Version None)
Quarter: 2008Q3

REPORT INFORMATION
  Report Type: 
  Country: None (occurrence: None)
  Receive Date: 20080707
  Receipt Date: 20080707
  Transmission Date: 20090109
  Serious: Yes (Life-Threatening, Hospitalization, Disabling)
  Sender: FDA-Public Use
  Company Number: None

PATIENT
  Sex: Male
  Weight: 104.3273 kg

DRUGS (1)
  1. GLIMEPIRIDE  4 MG  MYLAN [Suspect]
     Indication: BLOOD GLUCOSE INCREASED
     Dosage: 1 TAB  2 PER DAY  (DURATION: 4 OR 5 DAYS)
     Dates: start: 20080615, end: 20080619

REACTIONS (3)
  - BLOOD GLUCOSE DECREASED [None]
  - PHARMACEUTICAL PRODUCT COMPLAINT [None]
  - SOMNOLENCE [None]
